FAERS Safety Report 24748662 (Version 1)
Quarter: 2024Q4

REPORT INFORMATION
  Report Type: Spontaneous
  Country: US (occurrence: US)
  Receive Date: 20241218
  Receipt Date: 20241218
  Transmission Date: 20250115
  Serious: No
  Sender: LUPIN
  Company Number: US-LUPIN PHARMACEUTICALS INC.-2024-12032

PATIENT

DRUGS (1)
  1. VARENICLINE [Suspect]
     Active Substance: VARENICLINE
     Indication: Smoking cessation therapy
     Dosage: UNK, BID
     Route: 065
     Dates: start: 202406

REACTIONS (4)
  - Drug ineffective [Unknown]
  - Product residue present [Unknown]
  - Product administration error [Unknown]
  - Product substitution error [Unknown]
